FAERS Safety Report 16627512 (Version 2)
Quarter: 2019Q3

REPORT INFORMATION
  Report Type: Spontaneous
  Country: SA (occurrence: SA)
  Receive Date: 20190724
  Receipt Date: 20190801
  Transmission Date: 20191004
  Serious: Yes (Life-Threatening, Hospitalization, Other)
  Sender: FDA-Public Use
  Company Number: SA-PFIZER INC-2019316051

PATIENT
  Age: 8 Year
  Sex: Female

DRUGS (7)
  1. HYDROXYCHLOROQUINE [Suspect]
     Active Substance: HYDROXYCHLOROQUINE
     Indication: PULMONARY ALVEOLAR HAEMORRHAGE
     Dosage: UNK, 1X/DAY
     Dates: start: 201502
  2. PREDNISOLONE. [Suspect]
     Active Substance: PREDNISOLONE
     Dosage: UNK, LOW DOSE
     Route: 048
     Dates: start: 201502
  3. METHYLPREDNISOLONE. [Suspect]
     Active Substance: METHYLPREDNISOLONE
     Indication: PULMONARY HAEMOSIDEROSIS
     Dosage: UNK, PULSE DOSE
     Dates: start: 201502
  4. AZATHIOPRINE. [Suspect]
     Active Substance: AZATHIOPRINE
     Indication: PULMONARY ALVEOLAR HAEMORRHAGE
     Dosage: UNK, 1X/DAY
     Dates: start: 201502
  5. PREDNISOLONE. [Suspect]
     Active Substance: PREDNISOLONE
     Dosage: 10 MG, ALTERNATE DAY
     Route: 048
     Dates: start: 201502
  6. PREDNISOLONE. [Suspect]
     Active Substance: PREDNISOLONE
     Dosage: 20 MG, ALTERNATE DAY
     Route: 048
     Dates: start: 201502
  7. PREDNISOLONE. [Suspect]
     Active Substance: PREDNISOLONE
     Indication: PULMONARY HAEMOSIDEROSIS
     Dosage: 2 MG/KG, 1X/DAY
     Route: 048
     Dates: start: 201407, end: 201411

REACTIONS (2)
  - Pulmonary embolism [Recovering/Resolving]
  - Drug ineffective [Recovering/Resolving]

NARRATIVE: CASE EVENT DATE: 201703
